FAERS Safety Report 24952255 (Version 1)
Quarter: 2025Q1

REPORT INFORMATION
  Report Type: Spontaneous
  Country: DE (occurrence: DE)
  Receive Date: 20250210
  Receipt Date: 20250210
  Transmission Date: 20250409
  Serious: Yes (Other)
  Sender: CARA THERAPEUTICS
  Company Number: DE-CARA THERAPEUTICS, INC.-2025-00045-DE

PATIENT

DRUGS (1)
  1. KORSUVA [Suspect]
     Active Substance: DIFELIKEFALIN ACETATE
     Indication: Product used for unknown indication

REACTIONS (4)
  - Paraesthesia [Unknown]
  - Sensory disturbance [Recovering/Resolving]
  - Nausea [Unknown]
  - Dizziness [Unknown]
